FAERS Safety Report 18480534 (Version 12)
Quarter: 2025Q4

REPORT INFORMATION
  Report Type: Spontaneous
  Country: US (occurrence: US)
  Receive Date: 20201109
  Receipt Date: 20251210
  Transmission Date: 20260118
  Serious: Yes (Death, Other)
  Sender: PFIZER
  Company Number: US-PFIZER INC-2020432001

PATIENT
  Age: 71 Year
  Sex: Female

DRUGS (1)
  1. XELJANZ XR [Suspect]
     Active Substance: TOFACITINIB CITRATE
     Dosage: 11 MG, 1X/DAY
     Route: 048

REACTIONS (9)
  - Death [Fatal]
  - Arterial occlusive disease [Unknown]
  - Dementia [Not Recovered/Not Resolved]
  - Arteriosclerosis coronary artery [Unknown]
  - Arteriosclerosis [Unknown]
  - Product prescribing error [Unknown]
  - Tongue movement disturbance [Unknown]
  - Hypoacusis [Unknown]
  - Speech disorder [Not Recovered/Not Resolved]
